FAERS Safety Report 21658320 (Version 2)
Quarter: 2022Q4

REPORT INFORMATION
  Report Type: Spontaneous
  Country: FR (occurrence: FR)
  Receive Date: 20221129
  Receipt Date: 20221227
  Transmission Date: 20230113
  Serious: Yes (Hospitalization, Other)
  Sender: FDA-Public Use
  Company Number: FR-ABBVIE-4216904

PATIENT
  Age: 53 Year
  Sex: Male

DRUGS (5)
  1. HUMIRA [Suspect]
     Active Substance: ADALIMUMAB
     Indication: Crohn^s disease
     Route: 058
     Dates: start: 2016, end: 20181012
  2. AZATHIOPRINE SODIUM [Concomitant]
     Active Substance: AZATHIOPRINE SODIUM
     Indication: Product used for unknown indication
  3. PANTOPRAZOLE [Concomitant]
     Active Substance: PANTOPRAZOLE
     Indication: Product used for unknown indication
  4. VENLAFAXINE HYDROCHLORIDE [Concomitant]
     Active Substance: VENLAFAXINE HYDROCHLORIDE
     Indication: Product used for unknown indication
  5. MIRTAZAPINE [Concomitant]
     Active Substance: MIRTAZAPINE
     Indication: Product used for unknown indication

REACTIONS (16)
  - Pulmonary embolism [Recovering/Resolving]
  - Toxic neuropathy [Unknown]
  - COVID-19 [Unknown]
  - Cardiomyopathy [Recovering/Resolving]
  - General physical health deterioration [Recovering/Resolving]
  - Neuropathy peripheral [Not Recovered/Not Resolved]
  - Stenosis [Unknown]
  - Sensory disturbance [Unknown]
  - Myocarditis [Unknown]
  - Pain in extremity [Unknown]
  - Petechiae [Unknown]
  - Motor dysfunction [Unknown]
  - Vocal cord dysfunction [Unknown]
  - Dysphonia [Unknown]
  - Neuropathic muscular atrophy [Unknown]
  - Paraesthesia [Unknown]

NARRATIVE: CASE EVENT DATE: 20180101
